FAERS Safety Report 8484765-8 (Version None)
Quarter: 2012Q3

REPORT INFORMATION
  Report Type: 
  Country: None (occurrence: None)
  Receive Date: 20120703
  Receipt Date: 20120620
  Transmission Date: 20120928
  Serious: Yes (Other)
  Sender: FDA-Public Use
  Company Number: DE-SANOFI-AVENTIS-2012SA043992

PATIENT
  Age: 49 Year
  Sex: Female

DRUGS (2)
  1. MULTAQ [Suspect]
     Route: 048
  2. CARDIOVASCULAR SYSTEM DRUGS [Concomitant]
     Route: 048

REACTIONS (2)
  - HEART RATE INCREASED [None]
  - ATRIAL FIBRILLATION [None]
